FAERS Safety Report 7938970-7 (Version None)
Quarter: 2011Q4

REPORT INFORMATION
  Report Type: 
  Country: None (occurrence: None)
  Receive Date: 20111124
  Receipt Date: 20111121
  Transmission Date: 20120403
  Serious: Yes (Other)
  Sender: FDA-Public Use
  Company Number: US-SP-2011-09670

PATIENT
  Sex: Female

DRUGS (2)
  1. TUBERCULIN NOS [Suspect]
     Indication: TUBERCULIN TEST
     Route: 023
     Dates: start: 20111003, end: 20111003
  2. FLUZONE [Suspect]
     Indication: IMMUNISATION
     Route: 030
     Dates: start: 20111003, end: 20111003

REACTIONS (6)
  - CHILLS [None]
  - PYREXIA [None]
  - NECK PAIN [None]
  - LYMPHADENOPATHY [None]
  - OROPHARYNGEAL PAIN [None]
  - COUGH [None]
